FAERS Safety Report 4279115-7 (Version None)
Quarter: 2004Q1

REPORT INFORMATION
  Report Type: 
  Country: None (occurrence: None)
  Receive Date: 20040122
  Receipt Date: 20040106
  Transmission Date: 20041129
  Serious: Yes (Hospitalization, Other)
  Sender: FDA-Public Use
  Company Number: 189855

PATIENT
  Age: 56 Year
  Sex: Female

DRUGS (1)
  1. AVONEX [Suspect]
     Indication: MULTIPLE SCLEROSIS
     Dosage: 30 MCG QW IM
     Route: 030
     Dates: start: 19990601, end: 20031201

REACTIONS (5)
  - BURNING SENSATION [None]
  - LYMPHOEDEMA [None]
  - ORAL CANDIDIASIS [None]
  - RESTLESS LEGS SYNDROME [None]
  - THROMBOSIS [None]
